FAERS Safety Report 8241880-1 (Version None)
Quarter: 2012Q1

REPORT INFORMATION
  Report Type: 
  Country: None (occurrence: None)
  Receive Date: 20120328
  Receipt Date: 20120316
  Transmission Date: 20120608
  Serious: Yes (Death)
  Sender: FDA-Public Use
  Company Number: ES-ACTELION-A-CH2012-62394

PATIENT
  Age: 13 Year
  Sex: Female

DRUGS (1)
  1. ZAVESCA [Suspect]
     Indication: NIEMANN-PICK DISEASE
     Dosage: 33 MG, TID
     Route: 048
     Dates: start: 20040808

REACTIONS (2)
  - RESPIRATORY FAILURE [None]
  - PNEUMONIA [None]
